FAERS Safety Report 6448812-7 (Version None)
Quarter: 2009Q4

REPORT INFORMATION
  Report Type: 
  Country: None (occurrence: None)
  Receive Date: 20091120
  Receipt Date: 20091110
  Transmission Date: 20100525
  Serious: Yes (Other)
  Sender: FDA-Public Use
  Company Number: PHHY2009CA49563

PATIENT
  Sex: Female

DRUGS (1)
  1. ACLASTA [Suspect]
     Indication: OSTEOPOROSIS
     Dosage: UNK
     Dates: start: 20081201

REACTIONS (5)
  - BLOOD CREATININE INCREASED [None]
  - DIALYSIS [None]
  - GASTROENTERITIS [None]
  - OEDEMA PERIPHERAL [None]
  - SWELLING FACE [None]
